FAERS Safety Report 20506349 (Version 2)
Quarter: 2022Q2

REPORT INFORMATION
  Report Type: Spontaneous
  Country: US (occurrence: US)
  Receive Date: 20220223
  Receipt Date: 20220405
  Transmission Date: 20220720
  Serious: No
  Sender: FDA-Public Use
  Company Number: US-PFIZER INC-2021353821

PATIENT
  Age: 74 Year
  Sex: Female
  Weight: 105.23 kg

DRUGS (6)
  1. IBRANCE [Suspect]
     Active Substance: PALBOCICLIB
     Indication: Breast cancer female
     Dosage: 125 MG, CYCLIC
     Route: 048
     Dates: start: 202101
  2. IBRANCE [Suspect]
     Active Substance: PALBOCICLIB
     Dosage: 125 MG
     Dates: start: 20210212
  3. IBRANCE [Suspect]
     Active Substance: PALBOCICLIB
     Dosage: 125 MG
     Dates: end: 20211226
  4. IBRANCE [Suspect]
     Active Substance: PALBOCICLIB
     Dosage: 125 MG
     Dates: start: 20211214
  5. ARIMIDEX [Concomitant]
     Active Substance: ANASTROZOLE
     Dosage: UNK
  6. ZOMETA [Concomitant]
     Active Substance: ZOLEDRONIC ACID
     Dosage: UNK (EVERY 3 MONTHS)

REACTIONS (8)
  - Nutritional condition abnormal [Unknown]
  - Feeling abnormal [Unknown]
  - Fatigue [Unknown]
  - Arthralgia [Unknown]
  - Chills [Unknown]
  - Nasopharyngitis [Unknown]
  - Euphoric mood [Unknown]
  - Knee arthroplasty [Unknown]
